FAERS Safety Report 9779703 (Version 1)
Quarter: 2013Q4

REPORT INFORMATION
  Report Type: Spontaneous
  Country: US (occurrence: US)
  Receive Date: 20131223
  Receipt Date: 20131223
  Transmission Date: 20140711
  Serious: No
  Sender: FDA-Public Use
  Company Number: US-ENDO PHARMACEUTICALS INC.-ZOLP20130012

PATIENT
  Age: 57 Year
  Sex: Male

DRUGS (3)
  1. ZOLPIDEM TARTRATE TABLETS 10MG [Suspect]
     Indication: INSOMNIA
     Route: 048
     Dates: start: 201302, end: 201302
  2. ZOLPIDEM TARTRATE TABLETS 10MG [Suspect]
     Dosage: 5-10 MG
     Route: 048
     Dates: end: 20130204
  3. ZOLPIDEM TARTRATE TABLETS 10MG [Suspect]
     Dosage: 5-10 MG
     Route: 048
     Dates: start: 201302

REACTIONS (2)
  - Overdose [Recovered/Resolved]
  - Drug ineffective [Recovered/Resolved]
